FAERS Safety Report 8825145 (Version 1)
Quarter: 2012Q4

REPORT INFORMATION
  Report Type: 
  Country: US (occurrence: US)
  Receive Date: 20121004
  Receipt Date: 20121004
  Transmission Date: 20130627
  Serious: Yes (Other)
  Sender: FDA-Public Use
  Company Number: US-GLAXOSMITHKLINE-A0875341A

PATIENT
  Age: 58 Year
  Sex: Female

DRUGS (1)
  1. AVANDIA [Suspect]
     Indication: DIABETES MELLITUS
     Dosage: 4MG Per day
     Route: 048
     Dates: start: 20020912, end: 200608

REACTIONS (4)
  - Cardiac failure congestive [Not Recovered/Not Resolved]
  - Hypertension [Unknown]
  - Joint swelling [Unknown]
  - Weight increased [Unknown]
